FAERS Safety Report 6176738-5 (Version None)
Quarter: 2009Q2

REPORT INFORMATION
  Report Type: 
  Country: None (occurrence: None)
  Receive Date: 20090501
  Receipt Date: 20090428
  Transmission Date: 20091009
  Serious: Yes (Life-Threatening)
  Sender: FDA-Public Use
  Company Number: US-BRISTOL-MYERS SQUIBB COMPANY-14600720

PATIENT
  Age: 62 Year
  Sex: Male

DRUGS (7)
  1. DASATINIB [Suspect]
     Indication: PROSTATE CANCER
     Dosage: ALSO GIVEN ON 09APR2009
     Dates: start: 20090326
  2. ATENOLOL [Concomitant]
  3. ALDACTONE [Concomitant]
  4. METFORMIN HCL [Concomitant]
  5. SIMVASTATIN [Concomitant]
  6. PRILOSEC [Concomitant]
  7. NAPROSYN [Concomitant]

REACTIONS (1)
  - HYPONATRAEMIA [None]
